FAERS Safety Report 6812323-7 (Version None)
Quarter: 2010Q3

REPORT INFORMATION
  Report Type: 
  Country: None (occurrence: None)
  Receive Date: 20100701
  Receipt Date: 20100622
  Transmission Date: 20110219
  Serious: Yes (Other)
  Sender: FDA-Public Use
  Company Number: US-ASTRAZENECA-2010SE12994

PATIENT
  Age: 43 Year
  Sex: Female
  Weight: 137.4 kg

DRUGS (8)
  1. SEROQUEL [Suspect]
     Indication: BIPOLAR DISORDER
     Route: 048
     Dates: end: 20090401
  2. SEROQUEL [Suspect]
     Route: 048
  3. SEROQUEL [Suspect]
     Route: 048
  4. HYZAAR [Concomitant]
  5. BENADRYL [Concomitant]
     Indication: INSOMNIA
  6. PERCOCET [Concomitant]
     Indication: BACK PAIN
  7. PERCOCET [Concomitant]
     Indication: ARTHRALGIA
  8. ANTIHYPERTENSIVES [Concomitant]

REACTIONS (10)
  - ACNE [None]
  - ALOPECIA [None]
  - ANXIETY [None]
  - DIZZINESS [None]
  - DRUG DOSE OMISSION [None]
  - ELECTROCARDIOGRAM QT PROLONGED [None]
  - FEELING ABNORMAL [None]
  - LOSS OF CONSCIOUSNESS [None]
  - ORTHOSTATIC HYPOTENSION [None]
  - SYNCOPE [None]
